FAERS Safety Report 6563064-5 (Version None)
Quarter: 2010Q1

REPORT INFORMATION
  Report Type: 
  Country: None (occurrence: None)
  Receive Date: 20100130
  Receipt Date: 20091216
  Transmission Date: 20100710
  Serious: No
  Sender: FDA-Public Use
  Company Number: US-ABBOTT-09P-163-0612901-00

PATIENT
  Sex: Female
  Weight: 57.658 kg

DRUGS (6)
  1. HUMIRA [Suspect]
     Indication: CROHN'S DISEASE
     Route: 058
     Dates: start: 20091125
  2. HUMIRA [Suspect]
     Indication: RHEUMATOID ARTHRITIS
  3. INSULIN [Concomitant]
     Indication: TYPE 1 DIABETES MELLITUS
  4. VALTREX [Concomitant]
     Indication: GENITAL HERPES
  5. TRILOPRAM [Concomitant]
     Indication: DRUG USE FOR UNKNOWN INDICATION
  6. CRESTOR [Concomitant]
     Indication: BLOOD CHOLESTEROL INCREASED

REACTIONS (4)
  - PRURITUS [None]
  - RASH [None]
  - SCAB [None]
  - STAPHYLOCOCCAL INFECTION [None]
